FAERS Safety Report 6378985-6 (Version None)
Quarter: 2009Q3

REPORT INFORMATION
  Report Type: 
  Country: None (occurrence: None)
  Receive Date: 20090928
  Receipt Date: 20090917
  Transmission Date: 20100115
  Serious: Yes (Other)
  Sender: FDA-Public Use
  Company Number: PHHY2009CL12350

PATIENT
  Age: 49 Year
  Sex: Female

DRUGS (6)
  1. EXFORGE [Suspect]
     Indication: HYPERTENSION
     Dosage: 1 TABLET (5MG ) PER DAY
     Dates: start: 20081201
  2. GLAFORNIL [Concomitant]
  3. CRESTOR [Concomitant]
  4. OMEPRAZOL ^ACYFABRIK^ [Concomitant]
  5. ALENDRONATO SODICO [Concomitant]
  6. RAVOTRIL [Concomitant]

REACTIONS (1)
  - TACHYCARDIA [None]
